FAERS Safety Report 4928668-1 (Version None)
Quarter: 2006Q1

REPORT INFORMATION
  Report Type: 
  Country: None (occurrence: None)
  Receive Date: 20060227
  Receipt Date: 20060227
  Transmission Date: 20060701
  Serious: Yes (Hospitalization)
  Sender: FDA-Public Use
  Company Number: None

PATIENT
  Sex: Female
  Weight: 77.429 kg

DRUGS (1)
  1. PARAPLATIN [Suspect]
     Indication: OVARIAN CANCER
     Dosage: 470MG X 1 IV   INTERMITTENTLY SINCE 2002
     Route: 042
     Dates: start: 20020101

REACTIONS (8)
  - CARDIO-RESPIRATORY ARREST [None]
  - DYSPNOEA [None]
  - FALL [None]
  - FOAMING AT MOUTH [None]
  - INFUSION RELATED REACTION [None]
  - MICTURITION URGENCY [None]
  - PRURITUS [None]
  - STARING [None]
